FAERS Safety Report 7589646-X (Version None)
Quarter: 2011Q3

REPORT INFORMATION
  Report Type: 
  Country: None (occurrence: None)
  Receive Date: 20110705
  Receipt Date: 20110628
  Transmission Date: 20111222
  Serious: Yes (Other)
  Sender: FDA-Public Use
  Company Number: US-ROCHE-786814

PATIENT
  Sex: Male

DRUGS (1)
  1. BONIVA [Suspect]
     Dosage: ROUTE, DOSE AND FREQUENCY WAS NOT REPORTED.
     Route: 065

REACTIONS (5)
  - MUSCULAR WEAKNESS [None]
  - SHOULDER OPERATION [None]
  - ABDOMINAL PAIN UPPER [None]
  - ARTHRITIS [None]
  - CARDIAC FLUTTER [None]
